FAERS Safety Report 23290616 (Version 1)
Quarter: 2023Q4

REPORT INFORMATION
  Report Type: Spontaneous
  Country: US (occurrence: US)
  Receive Date: 20231213
  Receipt Date: 20231213
  Transmission Date: 20240110
  Serious: No
  Sender: FDA-Public Use
  Company Number: US-ABBVIE-2301981US

PATIENT
  Age: 29 Year
  Sex: Female

DRUGS (10)
  1. BOTOX [Suspect]
     Active Substance: ONABOTULINUMTOXINA
     Indication: Lip disorder
     Dosage: TIME INTERVAL: AS NECESSARY
     Dates: start: 20221121, end: 20221121
  2. BOTOX [Suspect]
     Active Substance: ONABOTULINUMTOXINA
     Indication: Lip disorder
     Dosage: TIME INTERVAL: AS NECESSARY
     Dates: start: 20221121, end: 20221121
  3. BOTOX [Suspect]
     Active Substance: ONABOTULINUMTOXINA
     Indication: Lip disorder
     Dosage: TIME INTERVAL: AS NECESSARY
     Dates: start: 20221121, end: 20221121
  4. BOTOX [Suspect]
     Active Substance: ONABOTULINUMTOXINA
     Indication: Lip disorder
     Dosage: TIME INTERVAL: AS NECESSARY
     Dates: start: 20221121, end: 20221121
  5. BOTOX [Suspect]
     Active Substance: ONABOTULINUMTOXINA
     Indication: Lip disorder
     Dosage: TIME INTERVAL: AS NECESSARY
     Dates: start: 20221121, end: 20221121
  6. BOTOX [Suspect]
     Active Substance: ONABOTULINUMTOXINA
     Indication: Lip disorder
     Dosage: TIME INTERVAL: AS NECESSARY
     Dates: start: 20230118, end: 20230118
  7. BOTOX [Suspect]
     Active Substance: ONABOTULINUMTOXINA
     Indication: Lip disorder
     Dosage: TIME INTERVAL: AS NECESSARY
     Dates: start: 20230118, end: 20230118
  8. BOTOX [Suspect]
     Active Substance: ONABOTULINUMTOXINA
     Indication: Lip disorder
     Dosage: TIME INTERVAL: AS NECESSARY
     Dates: start: 20230118, end: 20230118
  9. BOTOX [Suspect]
     Active Substance: ONABOTULINUMTOXINA
     Indication: Lip disorder
     Dosage: TIME INTERVAL: AS NECESSARY
     Dates: start: 20230118, end: 20230118
  10. BOTOX [Suspect]
     Active Substance: ONABOTULINUMTOXINA
     Indication: Lip disorder
     Dosage: TIME INTERVAL: AS NECESSARY
     Dates: start: 20230118, end: 20230118

REACTIONS (3)
  - Product preparation error [Unknown]
  - Off label use [Unknown]
  - Therapeutic response shortened [Unknown]

NARRATIVE: CASE EVENT DATE: 20221121
